FAERS Safety Report 14400991 (Version 1)
Quarter: 2018Q1

REPORT INFORMATION
  Report Type: Report from Study
  Country: CA (occurrence: CA)
  Receive Date: 20180117
  Receipt Date: 20180117
  Transmission Date: 20180509
  Serious: Yes (Other)
  Sender: FDA-Public Use
  Company Number: CA-CONCORDIA PHARMACEUTICALS INC.-GSH201801-000204

PATIENT
  Age: 40 Year
  Sex: Female

DRUGS (13)
  1. TECTA [Concomitant]
     Active Substance: PANTOPRAZOLE MAGNESIUM
  2. VITAMIN C [Concomitant]
     Active Substance: ASCORBIC ACID
  3. HYDROXYCHLOROQUINE [Suspect]
     Active Substance: HYDROXYCHLOROQUINE
     Indication: PRODUCT USED FOR UNKNOWN INDICATION
     Route: 048
  4. CYCLINEX [Concomitant]
  5. ACETAMINOPHEN. [Concomitant]
     Active Substance: ACETAMINOPHEN
  6. PERCOCET [Concomitant]
     Active Substance: ACETAMINOPHEN\OXYCODONE HYDROCHLORIDE
  7. DIPHENHYDRAMINE. [Suspect]
     Active Substance: DIPHENHYDRAMINE
     Indication: PRODUCT USED FOR UNKNOWN INDICATION
     Route: 048
  8. DIPHENHYDRAMINE HYDROCHLORIDE. [Concomitant]
     Active Substance: DIPHENHYDRAMINE HYDROCHLORIDE
  9. METHYLPREDNISOLONE. [Concomitant]
     Active Substance: METHYLPREDNISOLONE
  10. RITUXAN [Suspect]
     Active Substance: RITUXIMAB
     Indication: RHEUMATOID ARTHRITIS
     Route: 042
  11. FILGRASTIM [Concomitant]
     Active Substance: FILGRASTIM
  12. NAPROXEN. [Concomitant]
     Active Substance: NAPROXEN
  13. MELATONIN [Concomitant]
     Active Substance: MELATONIN

REACTIONS (6)
  - Nasopharyngitis [Not Recovered/Not Resolved]
  - Nausea [Not Recovered/Not Resolved]
  - Blood pressure decreased [Not Recovered/Not Resolved]
  - Toxicity to various agents [Not Recovered/Not Resolved]
  - Fatigue [Not Recovered/Not Resolved]
  - Visual impairment [Not Recovered/Not Resolved]
